FAERS Safety Report 4533389-3 (Version None)
Quarter: 2004Q4

REPORT INFORMATION
  Report Type: 
  Country: None (occurrence: None)
  Receive Date: 20041210
  Receipt Date: 20041026
  Transmission Date: 20050328
  Serious: Yes (Other)
  Sender: FDA-Public Use
  Company Number: 2004-00309

PATIENT
  Sex: Male
  Weight: 74.4 kg

DRUGS (3)
  1. VELCADE [Suspect]
     Indication: MULTIPLE MYELOMA
     Dosage: 2.60 MG, IV BOLUS
     Route: 042
     Dates: start: 20040126, end: 20040402
  2. THALIDOMIDE (THALIDOMIDE) [Suspect]
     Indication: MULTIPLE MYELOMA
     Dosage: 150.00 MG, ORAL
     Route: 048
  3. THALIDOMIDE (THALIDOMIDE) [Suspect]
     Dosage: 40.00 MG

REACTIONS (2)
  - NEUROPATHY PERIPHERAL [None]
  - PAIN [None]
